FAERS Safety Report 7075283-2 (Version None)
Quarter: 2010Q4

REPORT INFORMATION
  Report Type: 
  Country: None (occurrence: None)
  Receive Date: 20101030
  Receipt Date: 20100712
  Transmission Date: 20110411
  Serious: No
  Sender: FDA-Public Use
  Company Number: US-WYE-H15903110

PATIENT
  Age: 35 Year
  Sex: Female
  Weight: 59.02 kg

DRUGS (4)
  1. ADVIL PM [Suspect]
     Indication: INSOMNIA
     Dosage: 1 CAPLET, THEN 2 MORE 6 HOURS LATER
     Route: 048
     Dates: start: 20100614, end: 20100614
  2. KLONOPIN [Concomitant]
  3. LITHIUM [Concomitant]
  4. CITALOPRAM HYDROBROMIDE [Concomitant]

REACTIONS (1)
  - DRUG EFFECT DECREASED [None]
